FAERS Safety Report 9765931 (Version 1)
Quarter: 2013Q4

REPORT INFORMATION
  Report Type: Spontaneous
  Country: US (occurrence: US)
  Receive Date: 20131217
  Receipt Date: 20131217
  Transmission Date: 20140711
  Serious: No
  Sender: FDA-Public Use
  Company Number: US-BIOGENIDEC-2013BI113804

PATIENT
  Age: 59 Year
  Sex: Female
  Weight: 90 kg

DRUGS (11)
  1. TECFIDERA [Suspect]
     Indication: PRODUCT USED FOR UNKNOWN INDICATION
     Route: 048
  2. SAVELLA [Concomitant]
     Route: 048
  3. LYRICA [Concomitant]
     Route: 048
  4. TAMSULOSIN [Concomitant]
     Route: 048
  5. STOOL SOFTENER [Concomitant]
     Route: 048
  6. VITAMIN D3 [Concomitant]
     Route: 048
  7. CRANBERRY [Concomitant]
     Route: 048
  8. MIRALAX POW 3350 [Concomitant]
     Route: 048
  9. FISH OIL [Concomitant]
     Route: 048
  10. SYNTHROID [Concomitant]
     Route: 048
  11. LISINOP/HCTZ [Concomitant]
     Route: 048

REACTIONS (1)
  - Depression [Unknown]
